FAERS Safety Report 13240312 (Version 1)
Quarter: 2017Q1

REPORT INFORMATION
  Report Type: Spontaneous
  Country: US (occurrence: US)
  Receive Date: 20170216
  Receipt Date: 20170216
  Transmission Date: 20170428
  Serious: No
  Sender: FDA-Public Use
  Company Number: US-RELYPSA-RLY2016003405

PATIENT
  Age: 64 Year
  Sex: Male

DRUGS (14)
  1. FOLBIC [Concomitant]
     Active Substance: CYANOCOBALAMIN\FOLIC ACID\PYRIDOXINE
     Dosage: UNK, QAM
  2. CITRACAL                           /00751520/ [Concomitant]
     Active Substance: CALCIUM CITRATE
     Dosage: UNK, QAM
  3. CLARITIN [Concomitant]
     Active Substance: LORATADINE
     Dosage: UNK, PRN
  4. SYNTHROID [Concomitant]
     Active Substance: LEVOTHYROXINE SODIUM
     Dosage: UNK, QAM
  5. MUCINEX [Concomitant]
     Active Substance: GUAIFENESIN
     Dosage: UNK, PRN
  6. BABY ASPIRIN [Concomitant]
     Active Substance: ASPIRIN
     Dosage: UNK, QHS
  7. TESTOSTERONE. [Concomitant]
     Active Substance: TESTOSTERONE
  8. VELTASSA [Suspect]
     Active Substance: PATIROMER
     Indication: BLOOD POTASSIUM INCREASED
     Dosage: 8.4 G, QD
     Route: 048
     Dates: start: 20161026
  9. FISH OIL [Concomitant]
     Active Substance: FISH OIL
     Dosage: UNK, QAM
  10. IRBESARTAN. [Concomitant]
     Active Substance: IRBESARTAN
     Dosage: UNK, QHS
  11. KLONOPIN [Concomitant]
     Active Substance: CLONAZEPAM
     Dosage: UNK, QHS
  12. FLONASE                            /00908302/ [Concomitant]
     Active Substance: MOMETASONE FUROATE
     Dosage: UNK, PRN
  13. ATORVASTATIN [Concomitant]
     Active Substance: ATORVASTATIN
     Dosage: UNK, QHS
  14. DIVALPROEX [Concomitant]
     Active Substance: DIVALPROEX SODIUM
     Dosage: UNK, QHS

REACTIONS (1)
  - Drug administration error [Not Recovered/Not Resolved]

NARRATIVE: CASE EVENT DATE: 20161026
